FAERS Safety Report 13770375 (Version 1)
Quarter: 2017Q3

REPORT INFORMATION
  Report Type: Spontaneous
  Country: US (occurrence: US)
  Receive Date: 20170719
  Receipt Date: 20170719
  Transmission Date: 20171127
  Serious: Yes (Hospitalization, Other)
  Sender: FDA-Public Use
  Company Number: None

PATIENT
  Age: 87 Year
  Sex: Male

DRUGS (1)
  1. ZYTIGA [Suspect]
     Active Substance: ABIRATERONE ACETATE
     Indication: PROSTATE CANCER
     Dosage: ?          OTHER DOSE:MG;?
     Route: 048
     Dates: start: 20160804, end: 20170718

REACTIONS (1)
  - Disease progression [None]

NARRATIVE: CASE EVENT DATE: 20170719
